FAERS Safety Report 7312320-1 (Version None)
Quarter: 2011Q1

REPORT INFORMATION
  Report Type: 
  Country: None (occurrence: None)
  Receive Date: 20110224
  Receipt Date: 20110223
  Transmission Date: 20110831
  Serious: Yes (Other)
  Sender: FDA-Public Use
  Company Number: B0701977A

PATIENT
  Sex: Female

DRUGS (1)
  1. AMOXICILLIN AND CLAVULANATE POTASSIUM [Suspect]
     Route: 048
     Dates: start: 20080901, end: 20080901

REACTIONS (4)
  - RASH MACULAR [None]
  - FACE OEDEMA [None]
  - OROPHARYNGEAL DISCOMFORT [None]
  - OEDEMA PERIPHERAL [None]
